FAERS Safety Report 8581457-1 (Version None)
Quarter: 2012Q3

REPORT INFORMATION
  Report Type: 
  Country: None (occurrence: None)
  Receive Date: 20120809
  Receipt Date: 20120801
  Transmission Date: 20120928
  Serious: Yes (Other)
  Sender: FDA-Public Use
  Company Number: 2012SP002164

PATIENT
  Age: 60 Year
  Sex: Male

DRUGS (1)
  1. LATUDA [Suspect]
     Indication: PSYCHOTIC DISORDER
     Route: 048

REACTIONS (2)
  - CONVULSION [None]
  - CEREBRAL HAEMORRHAGE [None]
